FAERS Safety Report 17286334 (Version 3)
Quarter: 2020Q1

REPORT INFORMATION
  Report Type: Report from Study
  Country: CA (occurrence: CA)
  Receive Date: 20200118
  Receipt Date: 20200224
  Transmission Date: 20200409
  Serious: Yes (Death, Hospitalization)
  Sender: FDA-Public Use
  Company Number: NVSC2020CA010544

PATIENT
  Age: 41 Year
  Sex: Female
  Weight: 56 kg

DRUGS (2)
  1. TRAMETINIB [Suspect]
     Active Substance: TRAMETINIB
     Indication: COLORECTAL CANCER METASTATIC
     Dosage: 2 MG, QD
     Route: 048
     Dates: start: 20191224, end: 20200107
  2. DABRAFENIB [Suspect]
     Active Substance: DABRAFENIB
     Indication: COLORECTAL CANCER METASTATIC
     Dosage: 150 MG, BID
     Route: 048
     Dates: start: 20191224, end: 20200106

REACTIONS (5)
  - Cough [Fatal]
  - Ventricular dysfunction [Fatal]
  - Hypothermia [Fatal]
  - Dyspnoea [Fatal]
  - Cardiogenic shock [Fatal]

NARRATIVE: CASE EVENT DATE: 20200107
